FAERS Safety Report 20001152 (Version 1)
Quarter: 2021Q4

REPORT INFORMATION
  Report Type: Spontaneous
  Country: US (occurrence: US)
  Receive Date: 20211027
  Receipt Date: 20211027
  Transmission Date: 20220303
  Serious: Yes (Death)
  Sender: FDA-Public Use
  Company Number: None

PATIENT
  Age: 70 Year
  Sex: Female
  Weight: 70.65 kg

DRUGS (5)
  1. OCTAGAM IMMUNE GLOBULIN (HUMAN) [Suspect]
     Active Substance: HUMAN IMMUNOGLOBULIN G
     Dosage: ?          OTHER FREQUENCY:LOADING DOSE/ONCE;
     Route: 041
     Dates: start: 20211020, end: 20211022
  2. FIRDAPSE [Concomitant]
     Active Substance: AMIFAMPRIDINE PHOSPHATE
     Dates: start: 20210809, end: 20211022
  3. ASPIRIN [Concomitant]
     Active Substance: ASPIRIN
  4. LEVOTHYROXINE [Concomitant]
     Active Substance: LEVOTHYROXINE
  5. metoprolol 12.5mg [Concomitant]

REACTIONS (2)
  - Wheezing [None]
  - General physical health deterioration [None]

NARRATIVE: CASE EVENT DATE: 20211022
